FAERS Safety Report 8341382 (Version 2)
Quarter: 2013Q2

REPORT INFORMATION
  Report Type: Spontaneous
  Country: US (occurrence: None)
  Receive Date: 20111202
  Receipt Date: 20121203
  Transmission Date: 20140414
  Serious: Yes (Other)
  Sender: FDA-Public Use
  Company Number: 2011SP046641

PATIENT
  Sex: Female

DRUGS (1)
  1. NUVARING [Suspect]
     Indication: PRODUCT USED FOR UNKNOWN INDICATION
     Dates: end: 20091101

REACTIONS (15)
  - CEREBROVASCULAR ACCIDENT [None]
  - Cerebral artery occlusion [None]
  - Hyperlipidaemia [None]
  - Limb injury [None]
  - Thrombocytosis [None]
  - Lipids increased [None]
  - Dysthymic disorder [None]
  - Diverticulitis [None]
  - Attention deficit/hyperactivity disorder [None]
  - Iron deficiency anaemia [None]
  - Myeloproliferative disorder [None]
  - Transient ischaemic attack [None]
  - Mole excision [None]
  - Melanocytic naevus [None]
  - Depression [None]
